FAERS Safety Report 7057543-4 (Version None)
Quarter: 2010Q4

REPORT INFORMATION
  Report Type: 
  Country: None (occurrence: None)
  Receive Date: 20101022
  Receipt Date: 20101018
  Transmission Date: 20110411
  Serious: Yes (Hospitalization, Other)
  Sender: FDA-Public Use
  Company Number: FR-KINGPHARMUSA00001-K201001288

PATIENT
  Age: 58 Year
  Sex: Female

DRUGS (8)
  1. ALTACE [Suspect]
     Indication: ESSENTIAL HYPERTENSION
     Dosage: 5 MG, QD
     Route: 048
     Dates: end: 20100914
  2. RIFINAH [Suspect]
     Indication: DISSEMINATED TUBERCULOSIS
     Dosage: 600 MG, QD
     Route: 048
     Dates: start: 20100906, end: 20100914
  3. MYAMBUTOL [Suspect]
     Indication: DISSEMINATED TUBERCULOSIS
     Dosage: 300 MG, TIW
     Route: 048
     Dates: start: 20100906, end: 20100914
  4. PYRAZINAMIDE [Suspect]
     Indication: DISSEMINATED TUBERCULOSIS
     Dosage: 1000 MG, TIW
     Route: 048
     Dates: start: 20100906, end: 20100914
  5. PLENDIL [Concomitant]
     Dosage: UNK
     Dates: end: 20100914
  6. ASPIRIN [Concomitant]
     Dosage: UNK
     Dates: end: 20100914
  7. TORASEMIDE [Concomitant]
     Dosage: UNK
     Dates: end: 20100914
  8. CALCITRIOL [Concomitant]
     Dosage: UNK
     Dates: end: 20100914

REACTIONS (12)
  - ABDOMINAL DISTENSION [None]
  - ABDOMINAL PAIN UPPER [None]
  - ACUTE HEPATIC FAILURE [None]
  - ASTHENIA [None]
  - FATIGUE [None]
  - HYPERPARATHYROIDISM SECONDARY [None]
  - INTERNATIONAL NORMALISED RATIO INCREASED [None]
  - IRON DEFICIENCY [None]
  - NAUSEA [None]
  - NEPHROGENIC ANAEMIA [None]
  - STUPOR [None]
  - VOMITING [None]
